FAERS Safety Report 23400944 (Version 1)
Quarter: 2024Q1

REPORT INFORMATION
  Report Type: Spontaneous
  Country: US (occurrence: US)
  Receive Date: 20240115
  Receipt Date: 20240115
  Transmission Date: 20240410
  Serious: Yes (Other)
  Sender: FDA-Public Use
  Company Number: US-ORGANON-O2401USA000654

PATIENT
  Sex: Male

DRUGS (4)
  1. REMERON [Suspect]
     Active Substance: MIRTAZAPINE
     Indication: Anxiety
     Dosage: 45 MG ONCE DAILY
     Route: 048
  2. REMERON [Suspect]
     Active Substance: MIRTAZAPINE
     Indication: Depression
  3. REMERON [Suspect]
     Active Substance: MIRTAZAPINE
     Indication: Insomnia
  4. ZOLOFT [Concomitant]
     Active Substance: SERTRALINE HYDROCHLORIDE
     Dosage: UNK

REACTIONS (4)
  - Suicidal ideation [Not Recovered/Not Resolved]
  - Tremor [Not Recovered/Not Resolved]
  - Muscle spasms [Not Recovered/Not Resolved]
  - Therapy interrupted [Unknown]

NARRATIVE: CASE EVENT DATE: 20230101
